FAERS Safety Report 8289952-X (Version None)
Quarter: 2012Q2

REPORT INFORMATION
  Report Type: 
  Country: None (occurrence: None)
  Receive Date: 20120417
  Receipt Date: 20120411
  Transmission Date: 20120825
  Serious: Yes (Hospitalization)
  Sender: FDA-Public Use
  Company Number: FR-PFIZER INC-A02200602249

PATIENT
  Age: 54 Year
  Sex: Female

DRUGS (6)
  1. AVASTIN [Suspect]
     Indication: COLON CANCER METASTATIC
     Dosage: 5 MG, UNK, ONCE
     Route: 042
     Dates: start: 20060726, end: 20060726
  2. IRINOTECAN HCL [Suspect]
     Indication: COLON CANCER METASTATIC
     Dosage: 150 MG, 1X/DAY
     Route: 042
     Dates: start: 20060724, end: 20060724
  3. ATROPINE [Suspect]
     Indication: PRODUCT USED FOR UNKNOWN INDICATION
     Dosage: 0.25 MG, DAILY
     Route: 058
     Dates: start: 20060724, end: 20060724
  4. FLUOROURACIL [Suspect]
     Indication: COLON CANCER METASTATIC
     Dosage: UNK
     Route: 042
     Dates: start: 20060724, end: 20060725
  5. LEVOLEUCOVORIN CALCIUM [Suspect]
     Indication: COLON CANCER METASTATIC
     Dosage: 100 MG, UNK
     Route: 042
     Dates: start: 20060724, end: 20060725
  6. ZOFRAN [Suspect]
     Indication: PROPHYLAXIS OF NAUSEA AND VOMITING
     Dosage: 8 MG, UNK
     Route: 042
     Dates: start: 20060724, end: 20060726

REACTIONS (3)
  - BLOOD LACTATE DEHYDROGENASE INCREASED [None]
  - VENOUS THROMBOSIS [None]
  - RENAL FAILURE ACUTE [None]
